FAERS Safety Report 17768770 (Version 1)
Quarter: 2020Q2

REPORT INFORMATION
  Report Type: Report from Study
  Country: US (occurrence: US)
  Receive Date: 20200512
  Receipt Date: 20200512
  Transmission Date: 20200714
  Serious: Yes (Death, Other)
  Sender: FDA-Public Use
  Company Number: US-SA-2020SA114024

PATIENT
  Age: 88 Year
  Sex: Male

DRUGS (8)
  1. CEFTRIAXONE. [Concomitant]
     Active Substance: CEFTRIAXONE
     Indication: CORONAVIRUS INFECTION
     Dosage: 1 G, QD SINGLE
     Route: 042
     Dates: start: 20200416, end: 20200416
  2. CEFTRIAXONE. [Concomitant]
     Active Substance: CEFTRIAXONE
     Dosage: 1 G, QD SINGLE
     Route: 042
     Dates: start: 20200417, end: 20200418
  3. SARILUMAB [Suspect]
     Active Substance: SARILUMAB
     Indication: CORONAVIRUS INFECTION
     Dosage: REGN88 OR PLACEBO 200 MG OR 400 MG, SINGLE OR MULTIPLE DOSES
     Route: 042
     Dates: start: 20200423, end: 20200423
  4. PLASMA [Concomitant]
     Active Substance: HUMAN PLASMA
     Indication: CORONAVIRUS INFECTION
     Dosage: 1 U, QD (SINGLE)
     Route: 042
     Dates: start: 20200421, end: 20200421
  5. HYDROXYCHLOROQUINE [Concomitant]
     Active Substance: HYDROXYCHLOROQUINE
     Dosage: 200 MG, BID
     Route: 048
     Dates: start: 20200418, end: 20200420
  6. HYDROXYCHLOROQUINE [Concomitant]
     Active Substance: HYDROXYCHLOROQUINE
     Indication: CORONAVIRUS INFECTION
     Dosage: 400 MG, BID
     Route: 048
     Dates: start: 20200417, end: 20200418
  7. AZITHROMYCIN ANHYDROUS. [Concomitant]
     Active Substance: AZITHROMYCIN ANHYDROUS
     Indication: CORONAVIRUS INFECTION
     Dosage: 500 MG, 1X
     Route: 042
     Dates: start: 20200417, end: 20200417
  8. ACETAMINOPHEN. [Concomitant]
     Active Substance: ACETAMINOPHEN
     Indication: PYREXIA
     Dosage: 650 MG, PRN
     Route: 048
     Dates: start: 20200417, end: 20200419

REACTIONS (3)
  - Leukopenia [Unknown]
  - Acute respiratory failure [Fatal]
  - Multiple organ dysfunction syndrome [Unknown]

NARRATIVE: CASE EVENT DATE: 20200424
